FAERS Safety Report 24149706 (Version 1)
Quarter: 2024Q3

REPORT INFORMATION
  Report Type: Spontaneous
  Country: US (occurrence: US)
  Receive Date: 20240730
  Receipt Date: 20240730
  Transmission Date: 20241016
  Serious: Yes (Hospitalization, Other)
  Sender: ZYDUS PHARM
  Company Number: US-CADILA HEALTHCARE LIMITED-US-ZYDUS-109889

PATIENT

DRUGS (1)
  1. BUPROPION [Suspect]
     Active Substance: BUPROPION
     Indication: Suicide attempt
     Dosage: UNK
     Route: 065

REACTIONS (11)
  - Brain injury [Unknown]
  - Brain death [Unknown]
  - Cerebral disorder [Unknown]
  - Encephalopathy [Unknown]
  - Electrocardiogram QRS complex prolonged [Unknown]
  - Electrocardiogram QT prolonged [Unknown]
  - Status epilepticus [Unknown]
  - Metabolic syndrome [Unknown]
  - Cognitive disorder [Unknown]
  - Hypotension [Unknown]
  - Intentional overdose [Unknown]
